FAERS Safety Report 7963089-9 (Version None)
Quarter: 2011Q4

REPORT INFORMATION
  Report Type: 
  Country: None (occurrence: None)
  Receive Date: 20111207
  Receipt Date: 20111129
  Transmission Date: 20120403
  Serious: Yes (Other)
  Sender: FDA-Public Use
  Company Number: US-ROCHE-752469

PATIENT
  Sex: Female
  Weight: 43.5 kg

DRUGS (3)
  1. ORTHO TRI-CYCLEN [Concomitant]
  2. ACCUTANE [Suspect]
     Indication: ACNE CYSTIC
     Route: 065
     Dates: start: 19971101, end: 19980301
  3. ACCUTANE [Suspect]
     Route: 065
     Dates: start: 19990728, end: 19991201

REACTIONS (7)
  - INTESTINAL OBSTRUCTION [None]
  - INFLAMMATORY BOWEL DISEASE [None]
  - DEPRESSION [None]
  - MULTI-ORGAN FAILURE [None]
  - DISTURBANCE IN ATTENTION [None]
  - VASCULITIS [None]
  - PLATELET COUNT INCREASED [None]
